FAERS Safety Report 6371984-X (Version None)
Quarter: 2009Q3

REPORT INFORMATION
  Report Type: 
  Country: None (occurrence: None)
  Receive Date: 20090917
  Receipt Date: 20090904
  Transmission Date: 20100115
  Serious: Yes (Death)
  Sender: FDA-Public Use
  Company Number: ADR19202009 (ARROW GENERICS LOG NO.: AG1597)

PATIENT
  Age: 64 Year
  Sex: Female

DRUGS (9)
  1. SALBUTAMOL (MFR: UNKNOWN) [Suspect]
     Dosage: 5 MG
  2. ATROVENT [Concomitant]
  3. PREDNISOLONE [Concomitant]
  4. AMOXICILLIN [Concomitant]
  5. IBUPROFEN [Concomitant]
  6. VENTODISKS (SALBUTAMOL) [Concomitant]
  7. SALMETEROL [Concomitant]
  8. FLUTICASONE (FLUTICASONE SALBUTAMOL) [Concomitant]
  9. PHYLLOCONTIN [Concomitant]

REACTIONS (2)
  - BRONCHOPNEUMONIA [None]
  - EMPHYSEMA [None]
